FAERS Safety Report 17009449 (Version 1)
Quarter: 2019Q4

REPORT INFORMATION
  Report Type: Spontaneous
  Country: CA (occurrence: CA)
  Receive Date: 20191108
  Receipt Date: 20191108
  Transmission Date: 20200122
  Serious: Yes (Disabling)
  Sender: FDA-Public Use
  Company Number: CA-TEVA-2019-CA-1132546

PATIENT
  Age: 77 Year
  Sex: Female

DRUGS (4)
  1. NAPROXEN SODIUM. [Suspect]
     Active Substance: NAPROXEN SODIUM
     Indication: SCOLIOSIS
     Dosage: 750 MILLIGRAM DAILY;
     Route: 048
  2. NAPROXEN SODIUM. [Suspect]
     Active Substance: NAPROXEN SODIUM
     Indication: OSTEOARTHRITIS
  3. ASA [Concomitant]
     Active Substance: ASPIRIN
  4. NAPROXEN SODIUM. [Suspect]
     Active Substance: NAPROXEN SODIUM
     Indication: BACK PAIN

REACTIONS (5)
  - Gait inability [Unknown]
  - Acute kidney injury [Unknown]
  - Confusional state [Unknown]
  - Fall [Unknown]
  - Asthenia [Unknown]
